FAERS Safety Report 7841556-6 (Version None)
Quarter: 2011Q4

REPORT INFORMATION
  Report Type: 
  Country: None (occurrence: None)
  Receive Date: 20111025
  Receipt Date: 20111013
  Transmission Date: 20120403
  Serious: Yes (Hospitalization)
  Sender: FDA-Public Use
  Company Number: CH-JNJFOC-20111005561

PATIENT
  Age: 78 Year
  Sex: Male
  Weight: 121 kg

DRUGS (10)
  1. METOZEROK [Concomitant]
     Indication: ESSENTIAL HYPERTENSION
     Route: 048
  2. POTASSIUM CHLORIDE [Concomitant]
     Indication: ILL-DEFINED DISORDER
     Route: 048
     Dates: start: 20110303
  3. ABIRATERONE [Suspect]
     Route: 048
  4. ABIRATERONE [Suspect]
     Indication: PROSTATE CANCER METASTATIC
     Route: 048
     Dates: start: 20110203
  5. TRAMADOL HCL [Concomitant]
     Indication: PAIN
     Dosage: DOSE OF 112.5 MG / 975 MG A DAY
     Route: 048
     Dates: start: 20110228
  6. INSPRA [Concomitant]
     Indication: ILL-DEFINED DISORDER
     Route: 048
  7. CITALOPRAM [Concomitant]
     Indication: BIPOLAR DISORDER
     Route: 048
     Dates: start: 20110902
  8. PREDNISONE [Suspect]
     Indication: PROSTATE CANCER METASTATIC
     Route: 048
     Dates: start: 20110203
  9. FURSOL [Concomitant]
     Indication: OEDEMA
     Route: 048
  10. CITALOPRAM [Concomitant]
     Indication: DEPRESSION
     Route: 048
     Dates: start: 20110902

REACTIONS (1)
  - MUSCULAR WEAKNESS [None]
